FAERS Safety Report 5052136-2 (Version None)
Quarter: 2006Q3

REPORT INFORMATION
  Report Type: 
  Country: None (occurrence: None)
  Receive Date: 20060712
  Receipt Date: 20060712
  Transmission Date: 20061208
  Serious: Yes (Life-Threatening, Hospitalization, Disabling)
  Sender: FDA-Public Use
  Company Number: None

PATIENT
  Age: 80 Year
  Sex: Male
  Weight: 75 kg

DRUGS (1)
  1. RISPERIDONE [Suspect]
     Indication: DEMENTIA
     Dosage: 0.5 MG PO DAILY
     Route: 048
     Dates: start: 20040501, end: 20060601

REACTIONS (1)
  - HAEMORRHAGIC STROKE [None]
